FAERS Safety Report 22113564 (Version 7)
Quarter: 2024Q1

REPORT INFORMATION
  Report Type: Report from Study
  Country: US (occurrence: US)
  Receive Date: 20230320
  Receipt Date: 20240219
  Transmission Date: 20240410
  Serious: Yes (Hospitalization, Other)
  Sender: FDA-Public Use
  Company Number: US-ABBVIE-4696681

PATIENT
  Age: 66 Year
  Sex: Female

DRUGS (35)
  1. VENCLEXTA [Suspect]
     Active Substance: VENETOCLAX
     Indication: Acute myeloid leukaemia
     Dosage: FORM STRENGTH: 100 MILLIGRAM, TAKE 4 TABLET(S) BY MOUTH EVERY DAY
     Route: 048
  2. VENCLEXTA [Suspect]
     Active Substance: VENETOCLAX
     Indication: Acute myeloid leukaemia
     Dosage: FORM STRENGTH: 100 MILLIGRAM, TAKE 4 TABLET(S) BY MOUTH EVERY DAY
     Route: 048
  3. VENCLEXTA [Suspect]
     Active Substance: VENETOCLAX
     Indication: Acute myeloid leukaemia
     Dosage: FORM STRENGTH: 100 MILLIGRAM
     Route: 048
  4. VENCLEXTA [Suspect]
     Active Substance: VENETOCLAX
     Indication: Acute myeloid leukaemia
     Dosage: TAKE 4 TABLET(S) BY MOUTH EVERY DAY
     Route: 048
     Dates: start: 20240205
  5. POSACONAZOLE [Concomitant]
     Active Substance: POSACONAZOLE
     Indication: Product used for unknown indication
     Dosage: 3 (100 MG) TABLET, ENTERIC COATED ORAL DAILY?FORM STRENGTH: 100 MG?FREQUENCY TEXT: TAKE AS DIRECTED
     Route: 048
     Dates: end: 20240205
  6. POSACONAZOLE [Concomitant]
     Active Substance: POSACONAZOLE
     Indication: Product used for unknown indication
     Dosage: TABLET, ENTERIC COATED) - (100 MG) TABLET?FORM STRENGTH: 100 MG?FREQUENCY TEXT: TAKE AS DIRECTED
     Route: 048
     Dates: start: 20230216, end: 20230218
  7. FLONASE [Concomitant]
     Active Substance: FLUTICASONE PROPIONATE
     Indication: Product used for unknown indication
     Dosage: FLONASE SUSPENSION
     Dates: start: 20230302
  8. DEXAMETHASONE SODIUM PHOSPHATE [Concomitant]
     Active Substance: DEXAMETHASONE PHOSPHATE\DEXAMETHASONE SODIUM PHOSPHATE
     Indication: Product used for unknown indication
     Dosage: SOLUTION
     Dates: start: 20230314, end: 20240205
  9. LACTASE [Concomitant]
     Active Substance: LACTASE
     Indication: Product used for unknown indication
     Dosage: 9000 UNIT(S)) TABLET ORAL DAILY PRN?FORM STRENGTH: 9000 UNIT
     Route: 048
  10. Allergy Relief [Concomitant]
     Indication: Product used for unknown indication
     Dosage: ALLERGY RELIEF SUSPENSION
     Dates: start: 20230315
  11. TRELEGY ELLIPTA [Concomitant]
     Active Substance: FLUTICASONE FUROATE\UMECLIDINIUM BROMIDE\VILANTEROL TRIFENATATE
     Indication: Inhalation therapy
     Dosage: BREATH ACTIVATED INHALATION, AEROSOL POWDER
     Route: 055
  12. RANITIDINE HYDROCHLORIDE [Concomitant]
     Active Substance: RANITIDINE HYDROCHLORIDE
     Indication: Product used for unknown indication
     Dosage: RANITIDINE HCL SOLUTION
     Dates: start: 20230313
  13. BUMETANIDE [Concomitant]
     Active Substance: BUMETANIDE
     Indication: Product used for unknown indication
     Dates: start: 20230216
  14. ONDANSETRON [Concomitant]
     Active Substance: ONDANSETRON
     Indication: Product used for unknown indication
     Dosage: SOLUTION?ONDANSETRON HG?FORM STRENGTH: 8 MG
     Dates: start: 20230314, end: 20240205
  15. ONDANSETRON [Concomitant]
     Active Substance: ONDANSETRON
     Indication: Product used for unknown indication
     Dosage: TIME INTERVAL: 0.33333333 DAYS: ORAL T,I.D 8 MG TABLET DISPERSIBLE?ONDANSETRON HG?FORM STRENGTH: ...
     Route: 048
  16. LEVAQUIN [Concomitant]
     Active Substance: LEVOFLOXACIN
     Indication: Product used for unknown indication
     Dosage: 500 MILLIGRAM
     Dates: start: 20230218
  17. COMPAZINE [Concomitant]
     Active Substance: PROCHLORPERAZINE MALEATE
     Indication: Nausea
     Dosage: TAKE 1 TABLET (10 MG) BY MOUTH EVERY 6 HOURS AS NEEDED FOR NAUSEA OR VOMITING?FORM STRENGTH: 10 MG
     Route: 048
  18. SIMETHICONE (DIMETHICONE) [Concomitant]
     Active Substance: DIMETHICONE
     Indication: Product used for unknown indication
     Dosage: FORM STRENGTH: 125 MG
     Route: 048
  19. FLUTICASONE [Concomitant]
     Active Substance: FLUTICASONE
     Indication: Product used for unknown indication
     Dosage: (THERAPY PACK) - 2 PUFF(S) (OF 50-0.9 ) THERAPY PAC NASAL DAILY?FLUTICASONE-SODIUM CHLORIDE NASAL
  20. AZACITIDINE [Concomitant]
     Active Substance: AZACITIDINE
     Indication: Product used for unknown indication
     Dosage: (SUSPENSION, WHEN RECONSTITUTED)
     Dates: start: 20230314, end: 20240205
  21. MONTELUKAST SODIUM [Concomitant]
     Active Substance: MONTELUKAST SODIUM
     Indication: Product used for unknown indication
     Dates: start: 20230802
  22. ACYCLOVIR [Concomitant]
     Active Substance: ACYCLOVIR
     Indication: Product used for unknown indication
     Dosage: FORM STRENGTH: 800 MG
     Route: 048
     Dates: start: 20230316
  23. FAMOTIDINE [Concomitant]
     Active Substance: FAMOTIDINE
     Indication: Product used for unknown indication
     Dosage: SOLUTION
     Dates: start: 20230314, end: 20240205
  24. LEXAPRO [Concomitant]
     Active Substance: ESCITALOPRAM OXALATE
     Indication: Product used for unknown indication
     Dosage: FORM STRENGTH: 10 MG
     Route: 048
  25. SSD [Concomitant]
     Active Substance: SILVER SULFADIAZINE
     Indication: Product used for unknown indication
     Dates: start: 20230411
  26. SPIRONOLACTONE [Concomitant]
     Active Substance: SPIRONOLACTONE
     Indication: Product used for unknown indication
     Dosage: 125 MG
     Dates: start: 20230711
  27. PROCHLORPERAZINE MALEATE [Concomitant]
     Active Substance: PROCHLORPERAZINE MALEATE
     Indication: Product used for unknown indication
     Dosage: 1 (10 MG) TABLET ORAL Q 6 HOURS?FORM STRENGTH: 10 MG
     Route: 048
  28. ESCITALOPRAM OXALATE [Concomitant]
     Active Substance: ESCITALOPRAM OXALATE
     Indication: Product used for unknown indication
     Dates: start: 20230315
  29. PRINZIDE [Concomitant]
     Active Substance: HYDROCHLOROTHIAZIDE\LISINOPRIL
     Indication: Product used for unknown indication
     Dosage: 20-12.5 MG TABLET TAKE 1 TABLET BY MOUTH ONCE DAILY
     Route: 048
  30. LEVOFLOXACIN [Concomitant]
     Active Substance: LEVOFLOXACIN
     Indication: Product used for unknown indication
     Dosage: FORM STRENGTH: 500 MG
     Route: 048
  31. TYLENOL PM [Concomitant]
     Active Substance: ACETAMINOPHEN\DIPHENHYDRAMINE
     Indication: Product used for unknown indication
     Dosage: EXTRA STRENGTH (600-25 MG) TABLET ORAL AT BEDTIME PRN
     Route: 048
  32. ZOFRAN [Concomitant]
     Active Substance: ONDANSETRON HYDROCHLORIDE
     Indication: Nausea
     Dosage: TIME INTERVAL: 0.33333333 DAYS: TAKE 1 TABLET (8 MG) BY MOUTH 3 TIMES DAILY AS NEEDED FOR NAUSEA ...
     Route: 048
  33. ZOFRAN [Concomitant]
     Active Substance: ONDANSETRON HYDROCHLORIDE
     Indication: Nausea
     Dosage: SOLUTION?FORM STRENGTH: 8 MG
     Dates: start: 20230314, end: 20240205
  34. ALBUTEROL SULFATE [Concomitant]
     Active Substance: ALBUTEROL SULFATE
     Indication: Product used for unknown indication
     Dosage: INHALATION Q 4 HOURS (AEROSOL, SOLUTION 2 PUFF(S) (OF 108 (GO BASE) MCG/ACT)
     Route: 055
     Dates: start: 20230802
  35. NICOTINE [Concomitant]
     Active Substance: NICOTINE
     Indication: Product used for unknown indication
     Dosage: 1 PATCH(ES) (OF 14 MG/24HR) PATCH 24 HR TRANSDERMAL DAILY
     Route: 062

REACTIONS (7)
  - Hypoacusis [Unknown]
  - Memory impairment [Unknown]
  - Pneumonia [Unknown]
  - Brain fog [Unknown]
  - Off label use [Unknown]
  - Ear infection [Unknown]
  - Off label use [Unknown]

NARRATIVE: CASE EVENT DATE: 20230314
